FAERS Safety Report 5859183-9 (Version None)
Quarter: 2008Q3

REPORT INFORMATION
  Report Type: 
  Country: None (occurrence: None)
  Receive Date: 20080826
  Receipt Date: 20080826
  Transmission Date: 20090109
  Serious: No
  Sender: FDA-Public Use
  Company Number: None

PATIENT
  Age: 54 Year
  Sex: Male
  Weight: 87.5442 kg

DRUGS (1)
  1. BACTRIM DS [Suspect]
     Indication: CELLULITIS
     Dosage: BID
     Dates: start: 20080823

REACTIONS (3)
  - ERYTHEMA [None]
  - PRURITUS GENERALISED [None]
  - SWELLING FACE [None]
